FAERS Safety Report 24454282 (Version 2)
Quarter: 2024Q4

REPORT INFORMATION
  Report Type: Report from Study
  Country: US (occurrence: US)
  Receive Date: 20241017
  Receipt Date: 20241018
  Transmission Date: 20250115
  Serious: No
  Sender: ROCHE
  Company Number: US-ROCHE-3462122

PATIENT
  Sex: Female

DRUGS (5)
  1. RITUXAN [Suspect]
     Active Substance: RITUXIMAB
     Indication: Rheumatoid arthritis
     Dosage: STRENGTH: 8MG/KG MAX 800MG
     Route: 041
  2. ETANERCEPT [Concomitant]
     Active Substance: ETANERCEPT
  3. ADALIMUMAB [Concomitant]
     Active Substance: ADALIMUMAB
  4. ABATACEPT [Concomitant]
     Active Substance: ABATACEPT
  5. REMICADE [Concomitant]
     Active Substance: INFLIXIMAB

REACTIONS (2)
  - Drug ineffective [Unknown]
  - No adverse event [Unknown]
